FAERS Safety Report 10584718 (Version 1)
Quarter: 2014Q4

REPORT INFORMATION
  Report Type: Spontaneous
  Country: US (occurrence: None)
  Receive Date: 20141113
  Receipt Date: 20141113
  Transmission Date: 20150529
  Serious: Yes (Other)
  Sender: FDA-Public Use
  Company Number: None

PATIENT
  Age: 49 Year
  Sex: Male
  Weight: 83.92 kg

DRUGS (5)
  1. BUPRENORPHINE/NALOXONE [Suspect]
     Active Substance: BUPRENORPHINE\NALOXONE
     Indication: DRUG DEPENDENCE
     Route: 060
     Dates: start: 201406, end: 20140827
  2. BUPRENORPHINE/NALOXONE [Suspect]
     Active Substance: BUPRENORPHINE\NALOXONE
     Indication: DRUG DEPENDENCE
     Dosage: WHITE TABLET
     Route: 060
     Dates: start: 201406, end: 20140827
  3. EFFEXOR [Concomitant]
     Active Substance: VENLAFAXINE HYDROCHLORIDE
  4. SEROQUEL [Concomitant]
     Active Substance: QUETIAPINE FUMARATE
  5. PRAZOSIN [Concomitant]
     Active Substance: PRAZOSIN

REACTIONS (4)
  - Abdominal discomfort [None]
  - Frustration [None]
  - Dependence [None]
  - Depressive symptom [None]

NARRATIVE: CASE EVENT DATE: 20140820
